FAERS Safety Report 10644558 (Version 1)
Quarter: 2014Q4

REPORT INFORMATION
  Report Type: Spontaneous
  Country: US (occurrence: US)
  Receive Date: 20141210
  Receipt Date: 20141210
  Transmission Date: 20150529
  Serious: Yes (Hospitalization, Other)
  Sender: FDA-Public Use
  Company Number: US-ABBVIE-14P-163-1316151-00

PATIENT
  Age: 54 Year
  Sex: Male

DRUGS (1)
  1. ANDROGEL [Suspect]
     Active Substance: TESTOSTERONE
     Indication: BLOOD TESTOSTERONE DECREASED
     Route: 061
     Dates: end: 20121203

REACTIONS (8)
  - Anxiety [Unknown]
  - Pain [Unknown]
  - Acute myocardial infarction [Unknown]
  - Deep vein thrombosis [Unknown]
  - Emotional distress [Unknown]
  - Physical disability [Unknown]
  - Thrombophlebitis [Unknown]
  - Injury [Unknown]
